FAERS Safety Report 5943593-5 (Version None)
Quarter: 2008Q4

REPORT INFORMATION
  Report Type: 
  Country: None (occurrence: None)
  Receive Date: 20081106
  Receipt Date: 20080811
  Transmission Date: 20090506
  Serious: No
  Sender: FDA-Public Use
  Company Number: A0742006A

PATIENT
  Age: 2 Year
  Sex: Male

DRUGS (1)
  1. AMOXIL [Suspect]
     Dosage: 1TSP TWICE PER DAY
     Route: 048
     Dates: start: 20080804, end: 20080808

REACTIONS (2)
  - HYPERSENSITIVITY [None]
  - OROPHARYNGEAL BLISTERING [None]
